FAERS Safety Report 7074569-5 (Version None)
Quarter: 2010Q4

REPORT INFORMATION
  Report Type: 
  Country: None (occurrence: None)
  Receive Date: 20101029
  Receipt Date: 20090925
  Transmission Date: 20110411
  Serious: Yes (Hospitalization)
  Sender: FDA-Public Use
  Company Number: A0714951A

PATIENT
  Age: 42 Year
  Sex: Female

DRUGS (5)
  1. IMITREX [Suspect]
     Indication: MIGRAINE
     Dosage: 5MG AS REQUIRED
     Route: 045
  2. IMITREX [Suspect]
     Dosage: 1INJ AS REQUIRED
     Route: 058
  3. SYNTHROID [Concomitant]
  4. HYOSCYAMINE [Concomitant]
  5. HERBAL SUPPLEMENTS [Concomitant]

REACTIONS (1)
  - DRUG INEFFECTIVE [None]
